FAERS Safety Report 11288138 (Version 3)
Quarter: 2015Q3

REPORT INFORMATION
  Report Type: Spontaneous
  Country: US (occurrence: US)
  Receive Date: 20150721
  Receipt Date: 20150806
  Transmission Date: 20151125
  Serious: Yes (Death, Hospitalization, Other)
  Sender: FDA-Public Use
  Company Number: US-PFIZER INC-2015240071

PATIENT
  Age: 72 Year
  Sex: Female

DRUGS (2)
  1. LEFLUNOMIDE. [Concomitant]
     Active Substance: LEFLUNOMIDE
     Indication: RHEUMATOID ARTHRITIS
     Dosage: 20 MG, UNK
     Dates: start: 201111
  2. XELJANZ [Suspect]
     Active Substance: TOFACITINIB CITRATE
     Indication: RHEUMATOID ARTHRITIS
     Dosage: 5 MG, 2X/DAY
     Route: 048
     Dates: end: 20150712

REACTIONS (5)
  - Abdominal discomfort [Unknown]
  - Hepatic cirrhosis [Unknown]
  - Multi-organ failure [Fatal]
  - Hepatic failure [Fatal]
  - Lactic acidosis [Unknown]

NARRATIVE: CASE EVENT DATE: 20150712
